FAERS Safety Report 6779199-8 (Version None)
Quarter: 2010Q2

REPORT INFORMATION
  Report Type: 
  Country: None (occurrence: None)
  Receive Date: 20100618
  Receipt Date: 20100610
  Transmission Date: 20101027
  Serious: Yes (Hospitalization)
  Sender: FDA-Public Use
  Company Number: US-ROCHE-703024

PATIENT
  Sex: Male

DRUGS (4)
  1. PEGINTERFERON ALFA-2A [Suspect]
     Indication: HEPATITIS C
     Dosage: PRE-FILLED SYRINGE; MISSED ONE DOSE
     Route: 065
     Dates: start: 20091026
  2. RIBAVIRIN [Suspect]
     Indication: HEPATITIS C
     Route: 065
     Dates: start: 20091026, end: 20100501
  3. RIBAVIRIN [Suspect]
     Route: 065
     Dates: start: 20100501
  4. LAMICTAL [Concomitant]
     Dosage: DRUG REPORTED AS LAMICITIL

REACTIONS (3)
  - FULL BLOOD COUNT DECREASED [None]
  - PLATELET COUNT DECREASED [None]
  - SYNCOPE [None]
